FAERS Safety Report 8623342-2 (Version None)
Quarter: 2012Q3

REPORT INFORMATION
  Report Type: 
  Country: None (occurrence: None)
  Receive Date: 20120824
  Receipt Date: 20120824
  Transmission Date: 20120928
  Serious: No
  Sender: FDA-Public Use
  Company Number: None

PATIENT
  Sex: Female
  Weight: 119.296 kg

DRUGS (2)
  1. DIVALPROEX SODIUM [Suspect]
     Indication: CONVULSION
     Dosage: 1 AM + 2 PM PO
     Route: 048
     Dates: start: 20101129
  2. DIVALPROEX SODIUM [Suspect]
     Indication: CONVULSION
     Dosage: 1 AM + 2 PM PO
     Route: 048
     Dates: start: 20110425

REACTIONS (1)
  - DRUG INEFFECTIVE [None]
